FAERS Safety Report 7102083-7 (Version None)
Quarter: 2010Q4

REPORT INFORMATION
  Report Type: 
  Country: None (occurrence: None)
  Receive Date: 20101115
  Receipt Date: 20101104
  Transmission Date: 20110411
  Serious: Yes (Other)
  Sender: FDA-Public Use
  Company Number: US-BIOGENIDEC-2010BI032231

PATIENT
  Age: 52 Year
  Sex: Female

DRUGS (3)
  1. TYSABRI [Suspect]
     Indication: MULTIPLE SCLEROSIS
     Route: 042
     Dates: start: 20080421, end: 20090923
  2. TYSABRI [Suspect]
     Route: 042
     Dates: start: 20100315, end: 20101007
  3. AVONEX [Concomitant]
     Indication: MULTIPLE SCLEROSIS
     Route: 030
     Dates: start: 20031027

REACTIONS (7)
  - DYSARTHRIA [None]
  - HYPOAESTHESIA [None]
  - MONOPLEGIA [None]
  - MUSCULAR WEAKNESS [None]
  - PANCREATITIS [None]
  - PYREXIA [None]
  - VIITH NERVE PARALYSIS [None]
